FAERS Safety Report 5473692-6 (Version None)
Quarter: 2007Q4

REPORT INFORMATION
  Report Type: 
  Country: None (occurrence: None)
  Receive Date: 20071001
  Receipt Date: 20070926
  Transmission Date: 20080405
  Serious: Yes (Other)
  Sender: FDA-Public Use
  Company Number: US-BOEHRINGER INGELHEIM PHARMACEUTICALS, INC.-2007-BP-21691BP

PATIENT
  Age: 74 Year
  Sex: Male

DRUGS (2)
  1. FLOMAX [Suspect]
     Indication: BENIGN PROSTATIC HYPERPLASIA
     Route: 048
     Dates: start: 20050101
  2. PROSCAR [Suspect]
     Indication: BENIGN PROSTATIC HYPERPLASIA
     Dates: start: 20060101, end: 20060101

REACTIONS (6)
  - BREAST TENDERNESS [None]
  - DRUG EFFECT DECREASED [None]
  - FATIGUE [None]
  - FLATULENCE [None]
  - GASTRIC CANCER [None]
  - OESOPHAGEAL CARCINOMA [None]
